FAERS Safety Report 22315006 (Version 1)
Quarter: 2023Q2

REPORT INFORMATION
  Report Type: Spontaneous
  Country: PT (occurrence: PT)
  Receive Date: 20230512
  Receipt Date: 20230512
  Transmission Date: 20230721
  Serious: Yes (Other)
  Sender: FDA-Public Use
  Company Number: PT-BAXTER-2023BAX021327

PATIENT
  Age: 27 Year
  Sex: Female

DRUGS (9)
  1. LIDOCAINE [Suspect]
     Active Substance: LIDOCAINE
     Indication: Spinal anaesthesia
     Dosage: BOLUS OF 15ML, 2%
     Route: 008
  2. LIDOCAINE [Suspect]
     Active Substance: LIDOCAINE
     Indication: Epidural anaesthesia
  3. SUFENTANIL [Suspect]
     Active Substance: SUFENTANIL
     Indication: Nerve block
     Dosage: 2.5 MCG, THROUGH THE L2/L3 INTERVERTEBRAL SPACE
     Route: 037
  4. SUFENTANIL [Suspect]
     Active Substance: SUFENTANIL
     Indication: Epidural anaesthesia
     Dosage: 5 MCG
     Route: 008
  5. SUFENTANIL [Suspect]
     Active Substance: SUFENTANIL
     Indication: Spinal anaesthesia
  6. ROPIVACAINE [Suspect]
     Active Substance: ROPIVACAINE
     Indication: Epidural analgesia
     Dosage: BOLUS OF 8 ML, 0.2%, WERE ADMINISTERED DURING THE NIGHT, AT 1:00 AM AND AT 5:00 AM, WITHOUT HEMODYNA
     Route: 037
  7. ROPIVACAINE [Suspect]
     Active Substance: ROPIVACAINE
     Indication: Epidural anaesthesia
     Dosage: BOLUS OF 10 ML, 0.13% AS NEEDED
     Route: 008
  8. ROPIVACAINE [Suspect]
     Active Substance: ROPIVACAINE
     Indication: Nerve block
     Dosage: 2 ML, 0.15%
     Route: 037
  9. ROPIVACAINE [Suspect]
     Active Substance: ROPIVACAINE
     Indication: Spinal anaesthesia

REACTIONS (6)
  - Horner^s syndrome [Recovering/Resolving]
  - Eyelid ptosis [Recovering/Resolving]
  - Miosis [Recovering/Resolving]
  - Heart rate decreased [Recovering/Resolving]
  - Maternal exposure during delivery [Unknown]
  - Hypotension [Recovering/Resolving]
